FAERS Safety Report 5439090-6 (Version None)
Quarter: 2007Q3

REPORT INFORMATION
  Report Type: 
  Country: None (occurrence: None)
  Receive Date: 20070831
  Receipt Date: 20070820
  Transmission Date: 20080115
  Serious: Yes (Other)
  Sender: FDA-Public Use
  Company Number: GB-GILEAD-2007-0013104

PATIENT
  Age: 5 Year
  Weight: 17 kg

DRUGS (2)
  1. VIREAD [Suspect]
     Indication: HIV TEST POSITIVE
  2. DIDANOSINE [Suspect]
     Indication: HIV TEST POSITIVE

REACTIONS (3)
  - BLOOD CREATININE INCREASED [None]
  - BLOOD PHOSPHORUS DECREASED [None]
  - CD4 LYMPHOCYTES DECREASED [None]
